FAERS Safety Report 20027152 (Version 1)
Quarter: 2021Q4

REPORT INFORMATION
  Report Type: Spontaneous
  Country: NO (occurrence: NO)
  Receive Date: 20211103
  Receipt Date: 20211103
  Transmission Date: 20220303
  Serious: Yes (Hospitalization, Disabling, Other)
  Sender: FDA-Public Use
  Company Number: None

PATIENT
  Age: 38 Year
  Sex: Female

DRUGS (2)
  1. KENACORT [Suspect]
     Active Substance: TRIAMCINOLONE
     Indication: Inflammation
     Dosage: ONE INJECTION
     Dates: start: 20200120
  2. Microgynon tab 150 mikrog/30 mikrog [Concomitant]
     Indication: Contraception
     Dosage: 30 MICROGRAM
     Dates: start: 202002, end: 20211014

REACTIONS (15)
  - Dizziness [Recovering/Resolving]
  - Blood pressure increased [Recovering/Resolving]
  - Neurological symptom [Recovering/Resolving]
  - Hypoaesthesia [Recovering/Resolving]
  - Heart rate increased [Recovering/Resolving]
  - Heart rate variability increased [Recovering/Resolving]
  - Presyncope [Recovering/Resolving]
  - Syncope [Unknown]
  - Muscular weakness [Unknown]
  - Malaise [Unknown]
  - Dizziness exertional [Unknown]
  - Limb discomfort [Unknown]
  - Asthenia [Unknown]
  - Myalgia [Unknown]
  - Cortisol increased [Unknown]

NARRATIVE: CASE EVENT DATE: 20200101
